FAERS Safety Report 8973974 (Version 1)
Quarter: 2012Q4

REPORT INFORMATION
  Report Type: 
  Country: US (occurrence: US)
  Receive Date: 20121218
  Receipt Date: 20121218
  Transmission Date: 20130627
  Serious: Yes (Other)
  Sender: FDA-Public Use
  Company Number: US-BRISTOL-MYERS SQUIBB COMPANY-16394876

PATIENT
  Age: 49 Year
  Sex: Female
  Weight: 76 kg

DRUGS (1)
  1. ABILIFY [Suspect]
     Indication: BIPOLAR I DISORDER
     Dosage: 10mg:8months ago
discontinued on 31Jan2012
again restarted

REACTIONS (5)
  - Suicidal ideation [Unknown]
  - Depression [Unknown]
  - Muscle spasms [Unknown]
  - Back pain [Unknown]
  - Hyperhidrosis [Unknown]
